FAERS Safety Report 24677314 (Version 3)
Quarter: 2024Q4

REPORT INFORMATION
  Report Type: Spontaneous
  Country: US (occurrence: US)
  Receive Date: 20241129
  Receipt Date: 20241216
  Transmission Date: 20250115
  Serious: No
  Sender: ROCHE
  Company Number: US-ROCHE-10000140593

PATIENT
  Age: 58 Year
  Sex: Female
  Weight: 68.95 kg

DRUGS (2)
  1. ACTEMRA ACTPEN [Suspect]
     Active Substance: TOCILIZUMAB
     Indication: Rheumatoid arthritis
     Dosage: ONGOING
     Route: 058
  2. ACTEMRA ACTPEN [Suspect]
     Active Substance: TOCILIZUMAB
     Dosage: ONGOING
     Route: 058

REACTIONS (11)
  - Syringe issue [Unknown]
  - Device issue [Unknown]
  - Skin discolouration [Unknown]
  - Eye pruritus [Recovering/Resolving]
  - Skin discolouration [Unknown]
  - Pruritus [Recovering/Resolving]
  - Pain [Unknown]
  - Wrong technique in product usage process [Unknown]
  - Asthenia [Unknown]
  - Wrong technique in product usage process [Unknown]
  - Device defective [Unknown]

NARRATIVE: CASE EVENT DATE: 20241118
